FAERS Safety Report 9451131 (Version 4)
Quarter: 2014Q2

REPORT INFORMATION
  Report Type: Spontaneous
  Country: FR (occurrence: FR)
  Receive Date: 20130809
  Receipt Date: 20140613
  Transmission Date: 20141212
  Serious: Yes (Death, Other)
  Sender: FDA-Public Use
  Company Number: FR-TEVA-422802ISR

PATIENT
  Age: 2 Month
  Sex: Female
  Weight: 5.23 kg

DRUGS (16)
  1. PROGLYCEM 50 MG/ML [Suspect]
     Indication: HYPOGLYCAEMIA
     Dosage: PROGRESSIVELY INCREASED TO 5 MG/KG/48
     Route: 048
     Dates: start: 20130620, end: 20130627
  2. PROGLYCEM 50 MG/ML [Suspect]
     Dosage: 12 MG/KG DAILY;
     Route: 048
     Dates: start: 20130628, end: 20130703
  3. PROGLYCEM 50 MG/ML [Suspect]
     Dosage: 9.8 MG/KG DAILY; DOSE DECREASED
     Route: 048
     Dates: start: 20130704
  4. PROGLYCEM 50 MG/ML [Suspect]
     Dosage: INCREASED TO 12 MG/KG ON 27-JUN-2013
     Route: 048
     Dates: start: 20130627, end: 20130627
  5. NIFEDIPINE RATIOPHARM [Suspect]
     Indication: HYPERTENSION
     Dosage: 1 MG/KG DAILY;
     Route: 048
     Dates: start: 20130624
  6. LASILIX [Suspect]
     Indication: SODIUM RETENTION
     Dates: start: 20130702
  7. LASILIX [Suspect]
     Dosage: 10 MILLIGRAM DAILY;
     Dates: start: 20130705
  8. ALDACTONE [Suspect]
     Indication: SODIUM RETENTION
     Dates: start: 20130701
  9. ALDACTONE [Suspect]
     Dosage: 4 MILLIGRAM DAILY; 20 MG ON MORNING AND EVENING
     Dates: start: 20130702
  10. ALDACTONE [Suspect]
     Dosage: 20 MILLIGRAM DAILY;
     Dates: start: 20130707
  11. EFFERALGAN [Suspect]
     Dosage: 168 MILLIGRAM DAILY;
  12. FOLIC ACID [Suspect]
  13. ALFACALCIDOL [Suspect]
     Indication: HYPOCALCAEMIA
     Dates: start: 20130704, end: 20130706
  14. CALCIUM GLUCONATE 10 % [Suspect]
     Indication: HYPOCALCAEMIA
     Dates: start: 20130704
  15. POTASSIUM GLUCONATE [Suspect]
     Indication: HYPOKALAEMIA
     Dosage: 3.7 ML/6H TO 2.2 ML/6H
     Dates: start: 20130703, end: 20130706
  16. ALPHA VITAMIN D [Concomitant]
     Dosage: 5 DROPS IN 12 HOURS

REACTIONS (12)
  - Cardio-respiratory arrest [Fatal]
  - Hyponatraemia [Unknown]
  - Oedema [Unknown]
  - Hypertrophy [Unknown]
  - Hyperhidrosis [Unknown]
  - Hypokalaemia [Unknown]
  - Hypocalcaemia [Unknown]
  - Tachycardia [Unknown]
  - Agitation [Unknown]
  - Bradycardia [Unknown]
  - Hypertension [Unknown]
  - Accidental overdose [Unknown]
